FAERS Safety Report 9423044 (Version 1)
Quarter: 2013Q3

REPORT INFORMATION
  Report Type: Spontaneous
  Country: US (occurrence: US)
  Receive Date: 20130726
  Receipt Date: 20130726
  Transmission Date: 20140515
  Serious: Yes (Other)
  Sender: FDA-Public Use
  Company Number: US-GLAXOSMITHKLINE-A1034955A

PATIENT
  Age: 21 Year
  Sex: Female

DRUGS (1)
  1. LAMICTAL XR [Suspect]
     Indication: PRODUCT USED FOR UNKNOWN INDICATION
     Dosage: 250MG UNKNOWN
     Route: 065
     Dates: start: 20121107

REACTIONS (1)
  - Convulsion [Unknown]
